FAERS Safety Report 15593637 (Version 1)
Quarter: 2018Q4

REPORT INFORMATION
  Report Type: Spontaneous
  Country: JP (occurrence: JP)
  Receive Date: 20181106
  Receipt Date: 20181106
  Transmission Date: 20190205
  Serious: Yes (Other)
  Sender: FDA-Public Use
  Company Number: JP-PFIZER INC-2018448202

PATIENT
  Age: 45 Year
  Sex: Female

DRUGS (7)
  1. ENVIOMYCIN [Concomitant]
     Indication: MYCOBACTERIAL INFECTION
     Dosage: UNK
  2. DELAMANID [Concomitant]
     Active Substance: DELAMANID
     Indication: MYCOBACTERIAL INFECTION
     Dosage: UNK
  3. CLOFAZIMINE [Concomitant]
     Active Substance: CLOFAZIMINE
     Indication: MYCOBACTERIAL INFECTION
     Dosage: UNK
  4. PROTHIONAMIDE [Concomitant]
     Active Substance: PROTIONAMIDE
     Indication: MYCOBACTERIAL INFECTION
     Dosage: UNK
  5. RIFABUTIN. [Suspect]
     Active Substance: RIFABUTIN
     Indication: MYCOBACTERIAL INFECTION
     Dosage: UNK
     Route: 048
     Dates: start: 2009
  6. CYCLOSERINE. [Concomitant]
     Active Substance: CYCLOSERINE
     Indication: MYCOBACTERIAL INFECTION
     Dosage: UNK
  7. MEROPENEM. [Concomitant]
     Active Substance: MEROPENEM
     Indication: MYCOBACTERIAL INFECTION
     Dosage: UNK

REACTIONS (2)
  - Deposit eye [Unknown]
  - Cataract [Unknown]

NARRATIVE: CASE EVENT DATE: 201702
